FAERS Safety Report 15981140 (Version 1)
Quarter: 2019Q1

REPORT INFORMATION
  Report Type: Spontaneous
  Country: US (occurrence: US)
  Receive Date: 20190218
  Receipt Date: 20190218
  Transmission Date: 20190418
  Serious: No
  Sender: FDA-Public Use
  Company Number: None

PATIENT
  Age: 69 Year
  Sex: Female
  Weight: 56.25 kg

DRUGS (11)
  1. BUPROPION HCL [Concomitant]
     Active Substance: BUPROPION HYDROCHLORIDE
  2. BUSPIRONE [Concomitant]
     Active Substance: BUSPIRONE HYDROCHLORIDE
  3. LORAZEPAM. [Concomitant]
     Active Substance: LORAZEPAM
  4. BUPROPION HCL 100MG SR [Suspect]
     Active Substance: BUPROPION HYDROCHLORIDE
     Indication: DEPRESSION
     Dosage: ?          QUANTITY:1 TABLET(S);?
     Route: 048
     Dates: start: 20190213, end: 20190215
  5. MAGNESIUM [Concomitant]
     Active Substance: MAGNESIUM
  6. VIT. D [Concomitant]
  7. ESTRADIOL. [Concomitant]
     Active Substance: ESTRADIOL
  8. CLONIDINE. [Concomitant]
     Active Substance: CLONIDINE
  9. CHLORTHALIDONE. [Concomitant]
     Active Substance: CHLORTHALIDONE
  10. CALCIUM [Concomitant]
     Active Substance: CALCIUM
  11. METROGEL [Concomitant]
     Active Substance: METRONIDAZOLE

REACTIONS (3)
  - Rash erythematous [None]
  - Product substitution issue [None]
  - Rash [None]

NARRATIVE: CASE EVENT DATE: 20190214
